FAERS Safety Report 17210428 (Version 1)
Quarter: 2019Q4

REPORT INFORMATION
  Report Type: Spontaneous
  Country: FR (occurrence: FR)
  Receive Date: 20191227
  Receipt Date: 20191227
  Transmission Date: 20200122
  Serious: Yes (Hospitalization)
  Sender: FDA-Public Use
  Company Number: FR-009507513-1912FRA007907

PATIENT
  Age: 75 Year
  Sex: Male
  Weight: 81.8 kg

DRUGS (12)
  1. KARDEGIC [Concomitant]
     Active Substance: ASPIRIN DL-LYSINE
     Route: 048
  2. ALLOPURINOL. [Concomitant]
     Active Substance: ALLOPURINOL
     Dosage: 100 MILLIGRAM, QD
     Route: 048
  3. INVANZ [Suspect]
     Active Substance: ERTAPENEM SODIUM
     Indication: UROSEPSIS
     Dosage: 1000 MILLIGRAM, QD
     Route: 058
     Dates: start: 20190730, end: 20190815
  4. TAMSULOSIN HYDROCHLORIDE. [Concomitant]
     Active Substance: TAMSULOSIN HYDROCHLORIDE
     Route: 048
  5. CORDARONE [Concomitant]
     Active Substance: AMIODARONE HYDROCHLORIDE
     Route: 048
  6. CORTANCYL [Concomitant]
     Active Substance: PREDNISONE
     Route: 048
  7. CELLCEPT [Concomitant]
     Active Substance: MYCOPHENOLATE MOFETIL\MYCOPHENOLATE MOFETIL HYDROCHLORIDE
     Dosage: 2 DOSAGE FORM, QD
     Route: 048
  8. BISOCE [Concomitant]
     Active Substance: BISOPROLOL
     Route: 048
  9. PREGABALIN. [Concomitant]
     Active Substance: PREGABALIN
     Dosage: 50 MILLIGRAM, QD
     Route: 048
  10. ADVAGRAF [Concomitant]
     Active Substance: TACROLIMUS
     Route: 048
  11. LANTUS [Concomitant]
     Active Substance: INSULIN GLARGINE
     Dosage: STRENGTH: 100UNITS/ML
     Route: 058
  12. LEVOTHYROX [Concomitant]
     Active Substance: LEVOTHYROXINE
     Route: 048

REACTIONS (3)
  - Intentional product use issue [Recovered/Resolved]
  - Injection site cellulitis [Recovered/Resolved]
  - Injection site abscess [Recovered/Resolved]

NARRATIVE: CASE EVENT DATE: 20190730
